FAERS Safety Report 11133614 (Version 1)
Quarter: 2015Q2

REPORT INFORMATION
  Report Type: Spontaneous
  Country: BR (occurrence: BR)
  Receive Date: 20150523
  Receipt Date: 20150523
  Transmission Date: 20150821
  Serious: Yes (Hospitalization, Disabling, Other)
  Sender: FDA-Public Use
  Company Number: BR-MERCK-1505BRA010259

PATIENT
  Age: 47 Year
  Sex: Female
  Weight: 84 kg

DRUGS (10)
  1. DESALEX [Suspect]
     Active Substance: DESLORATADINE
     Indication: MUSCLE SPASMS
     Dosage: 5 MG, QD
     Route: 048
     Dates: start: 2012, end: 2012
  2. DESALEX [Suspect]
     Active Substance: DESLORATADINE
     Dosage: 2.5 MG, QD
     Route: 048
  3. DESALEX [Suspect]
     Active Substance: DESLORATADINE
     Indication: HYPERSENSITIVITY
     Dosage: 5 MG, QD
     Route: 048
     Dates: start: 2012, end: 2012
  4. HYDROXYZINE [Concomitant]
     Active Substance: HYDROXYZINE\HYDROXYZINE HYDROCHLORIDE
     Dosage: UNK
     Dates: start: 2012
  5. FRONTAL [Concomitant]
     Active Substance: ALPRAZOLAM
     Indication: GENERALISED ANXIETY DISORDER
     Dosage: 1 MG, BID
     Route: 048
     Dates: start: 1999
  6. ALENIA [Concomitant]
     Active Substance: BUDESONIDE\FORMOTEROL FUMARATE
     Indication: BRONCHITIS
     Dosage: 1 DF, QD
     Dates: start: 2011
  7. METICORTEN [Suspect]
     Active Substance: PREDNISONE
     Dosage: UNKNOWN
     Route: 048
     Dates: start: 2012
  8. HYDROCHLORTHIAZID [Concomitant]
     Active Substance: HYDROCHLOROTHIAZIDE
     Indication: BLOOD PRESSURE INCREASED
     Dosage: UNK, PRN
     Route: 048
     Dates: start: 1995
  9. ENALAPRIL MALEATE. [Concomitant]
     Active Substance: ENALAPRIL MALEATE
     Indication: BLOOD PRESSURE INCREASED
     Dosage: UNK, BID
     Route: 048
     Dates: start: 1995
  10. GLIFAGE [Concomitant]
     Active Substance: METFORMIN HYDROCHLORIDE
     Indication: BLOOD GLUCOSE ABNORMAL
     Dosage: UNK, QPM
     Route: 048
     Dates: start: 2012

REACTIONS (11)
  - Somnolence [Not Recovered/Not Resolved]
  - Confusional state [Not Recovered/Not Resolved]
  - Urinary tract infection [Recovered/Resolved]
  - Feeling abnormal [Not Recovered/Not Resolved]
  - Blood pressure abnormal [Not Recovered/Not Resolved]
  - Headache [Not Recovered/Not Resolved]
  - Drug administration error [Unknown]
  - Thyroid cancer [Not Recovered/Not Resolved]
  - Blood urine [Recovered/Resolved]
  - Off label use [Unknown]
  - Wrong technique in drug usage process [Unknown]

NARRATIVE: CASE EVENT DATE: 2012
